FAERS Safety Report 6326020-8 (Version None)
Quarter: 2009Q3

REPORT INFORMATION
  Report Type: 
  Country: None (occurrence: None)
  Receive Date: 20090824
  Receipt Date: 20090812
  Transmission Date: 20100115
  Serious: Yes (Death, Hospitalization)
  Sender: FDA-Public Use
  Company Number: JP-TYCO HEALTHCARE/MALLINCKRODT-T200901448

PATIENT
  Age: 77 Year
  Sex: Male
  Weight: 46.7 kg

DRUGS (13)
  1. OPTIRAY 350 [Suspect]
     Indication: THERAPEUTIC EMBOLISATION
     Dosage: 120 ML, SINGLE
     Route: 013
     Dates: start: 20090703, end: 20090703
  2. OPTIRAY 350 [Suspect]
     Indication: ANGIOGRAM
  3. ETHYL ESTER OF IODINATED POPPY-SEED OIL FATTY ACID [Suspect]
     Indication: THERAPEUTIC EMBOLISATION
     Dosage: 10 ML, SINGLE
     Route: 013
     Dates: start: 20090703, end: 20090703
  4. EPIRUBICIN HYDROCHLORIDE [Suspect]
     Indication: THERAPEUTIC EMBOLISATION
     Dosage: 50 MG, SINGLE
     Route: 013
     Dates: start: 20090703, end: 20090703
  5. EPIRUBICIN HYDROCHLORIDE [Suspect]
     Indication: HEPATIC NEOPLASM MALIGNANT
  6. GELATIN MICROSPHERES [Suspect]
     Indication: THERAPEUTIC EMBOLISATION
     Dosage: UNK
     Route: 013
     Dates: start: 20090703, end: 20090703
  7. POLYCARBOPHIL CALCIUM [Suspect]
     Dosage: 3, ORAL
     Route: 048
     Dates: start: 20090702, end: 20090708
  8. CEFOTIAM HYDROCHLORIDE [Suspect]
     Dosage: 1 G, SINGLE
     Route: 042
     Dates: start: 20090703, end: 20090703
  9. CEFOTIAM HYDROCHLORIDE [Suspect]
     Dosage: 1 G, TWICE
     Route: 042
     Dates: start: 20090704, end: 20090704
  10. FLURBIPROFEN [Suspect]
     Dosage: 50 MG, SINGLE
     Route: 042
     Dates: start: 20090703, end: 20090703
  11. FLURBIPROFEN [Suspect]
     Dosage: 50 MG, TWICE
     Route: 042
     Dates: start: 20090704, end: 20090704
  12. GLYCYRRHIZIN GLYCINE CYSTEINE COMBINED [Suspect]
     Dosage: 40 ML, SINGLE
     Route: 042
     Dates: start: 20090702, end: 20090710
  13. LEVOFLOXACIN [Suspect]
     Dosage: 100 MG, TWICE, ORAL
     Route: 048
     Dates: start: 20090703, end: 20090703

REACTIONS (6)
  - DYSPNOEA [None]
  - HEPATIC FAILURE [None]
  - INTERSTITIAL LUNG DISEASE [None]
  - OXYGEN SATURATION DECREASED [None]
  - RENAL FAILURE [None]
  - RESPIRATORY FAILURE [None]
